FAERS Safety Report 5853405-6 (Version None)
Quarter: 2008Q3

REPORT INFORMATION
  Report Type: 
  Country: None (occurrence: None)
  Receive Date: 20080820
  Receipt Date: 20080805
  Transmission Date: 20090109
  Serious: Yes (Hospitalization, Other)
  Sender: FDA-Public Use
  Company Number: DSJ-2008-09940

PATIENT
  Age: 60 Year
  Sex: Male
  Weight: 63.4 kg

DRUGS (11)
  1. OLMESARTAN MEDOXOMIL [Suspect]
     Indication: ESSENTIAL HYPERTENSION
     Dosage: 20 MG (20 MG, 1 IN 1 D) PER ORAL
     Route: 048
     Dates: start: 20061028
  2. CARVEDILOL [Suspect]
     Dosage: 10 MG, (10 MG, 1 IN 1 D) PER ORAL
     Route: 048
     Dates: start: 20071129
  3. DONASHIN (DOXAZOSIN MESILATE) (DOXAZOSIN MESILATE) [Suspect]
     Dosage: 2 MG (2 MG, 1 IN 1 D) PER ORAL
     Route: 048
     Dates: start: 20061201, end: 20070301
  4. MAIBASTAN (PRAVASTATIN SODIUM) (PRAVASTATIN SODIUM) [Suspect]
     Dosage: 5 MG (5 MG, 1 IN 1 D), PER ORAL
     Route: 048
     Dates: start: 20061201, end: 20070301
  5. EUGLUCON (GLIBENCLAMIDE) (GLIBENCLAMIDE) [Suspect]
     Dosage: 2.5 MG (2.5 MG, 1 IN 1 D) PER ORAL
     Route: 048
     Dates: start: 20061201
  6. NORVASC [Suspect]
     Dosage: 5 MG (5 MG, 1 IN 1 D), PER ORAL
     Route: 048
     Dates: start: 20061120, end: 20071222
  7. DIART (AZOSMIDE) (AZOSEMIDE) [Suspect]
     Dosage: 30 MG (30 MG, 1 IN 1 D) PER ORAL
     Route: 048
     Dates: start: 20071026
  8. LIPITOR [Suspect]
     Dosage: 10 MG (10 MG, 1 IN 1 D) PER ORAL
     Route: 048
     Dates: start: 20071026
  9. VOGLIBOSE OD [Suspect]
     Dosage: 0.6 MG (0.2 MG, 3 IN 1 D) PER ORAL
     Route: 048
     Dates: start: 20071026
  10. BAYASPIRIN (ACETYLSALICYLIC ACID) (ACETYLSALICYLIC ACID) [Suspect]
     Dosage: 100 MG (100 MG, 1 IN 1 D) PER ORAL
     Route: 048
     Dates: start: 20071026
  11. OMEPRAZOLE [Suspect]
     Dosage: 20 MG (20 MG, 1 IN 1 D) PER ORAL
     Route: 048
     Dates: start: 20071129

REACTIONS (3)
  - CONDITION AGGRAVATED [None]
  - DIABETIC NEPHROPATHY [None]
  - RENAL IMPAIRMENT [None]
